FAERS Safety Report 26055227 (Version 1)
Quarter: 2025Q4

REPORT INFORMATION
  Report Type: Spontaneous
  Country: JP (occurrence: JP)
  Receive Date: 20251117
  Receipt Date: 20251117
  Transmission Date: 20260118
  Serious: Yes (Other)
  Sender: PFIZER
  Company Number: JP-PFIZER INC-PV202500132864

PATIENT
  Age: 85 Year
  Sex: Female

DRUGS (1)
  1. METHOTREXATE SODIUM [Suspect]
     Active Substance: METHOTREXATE SODIUM
     Indication: Lymphoma
     Dosage: 400 UG/0.1 ML, SCHEDULE OF TWICE A WEEK (FOR 4 WEEKS), ONCE A WEEK (FOR 8 WEEKS), AND ONCE A MONTH (
     Route: 031

REACTIONS (3)
  - Corneal epitheliopathy [Recovering/Resolving]
  - Off label use [Unknown]
  - Off label use [Unknown]
